FAERS Safety Report 5749433-1 (Version None)
Quarter: 2008Q2

REPORT INFORMATION
  Report Type: 
  Country: None (occurrence: None)
  Receive Date: 20080527
  Receipt Date: 20080521
  Transmission Date: 20081010
  Serious: Yes (Hospitalization)
  Sender: FDA-Public Use
  Company Number: IT-BAYER-200818840GPV

PATIENT
  Age: 62 Year
  Sex: Male

DRUGS (4)
  1. ASPIRIN [Suspect]
     Indication: ANTICOAGULANT THERAPY
     Dosage: TOTAL DAILY DOSE: 100 MG  UNIT DOSE: 100 MG
     Route: 048
     Dates: start: 20060501, end: 20080511
  2. AVODART [Concomitant]
     Indication: BENIGN PROSTATIC HYPERPLASIA
     Dosage: TOTAL DAILY DOSE: 0.5 MG  UNIT DOSE: 0.5 MG
     Route: 048
     Dates: start: 20060501, end: 20080511
  3. BENUR (DOXAZOSIN) [Concomitant]
     Indication: BENIGN PROSTATIC HYPERPLASIA
     Dosage: TOTAL DAILY DOSE: 4 MG  UNIT DOSE: 4 MG
     Route: 048
     Dates: start: 20060501, end: 20080511
  4. COMPETACT (PIOGLITAZONE + METFORMIN) [Concomitant]
     Indication: DIABETES MELLITUS
     Route: 048
     Dates: start: 20060501, end: 20080511

REACTIONS (3)
  - DUODENAL ULCER [None]
  - GASTRITIS EROSIVE [None]
  - HIATUS HERNIA [None]
